FAERS Safety Report 7036195-3 (Version None)
Quarter: 2010Q4

REPORT INFORMATION
  Report Type: 
  Country: None (occurrence: None)
  Receive Date: 20101008
  Receipt Date: 20100723
  Transmission Date: 20110411
  Serious: No
  Sender: FDA-Public Use
  Company Number: US-BRISTOL-MYERS SQUIBB COMPANY-15219355

PATIENT
  Age: 73 Year
  Sex: Male

DRUGS (2)
  1. AVAPRO [Suspect]
     Dosage: DURATION OF THERAPY: 2-3MONTHS AGO
     Dates: start: 20100101
  2. NORVASC [Suspect]
     Dosage: STARTED WITH 40MG;DECREASED TO 20MG AND 10MG;DURATION OF THERAPY: 2-3MONTHS AGO
     Dates: start: 20100101

REACTIONS (3)
  - HEADACHE [None]
  - JOINT SWELLING [None]
  - OEDEMA PERIPHERAL [None]
